FAERS Safety Report 10219789 (Version 1)
Quarter: 2014Q2

REPORT INFORMATION
  Report Type: Spontaneous
  Country: DE (occurrence: DE)
  Receive Date: 20140605
  Receipt Date: 20140605
  Transmission Date: 20141212
  Serious: Yes (Hospitalization)
  Sender: FDA-Public Use
  Company Number: DE-PFIZER INC-2014149690

PATIENT
  Age: 40 Year
  Sex: Female
  Weight: 93.2 kg

DRUGS (4)
  1. CLOZAPINE [Suspect]
     Dosage: 600 MG, 1X/DAY
     Route: 048
     Dates: start: 20130510
  2. LYRICA [Suspect]
     Indication: ANXIETY
     Dosage: 600 MG, 1X/DAY
     Route: 048
     Dates: start: 2012
  3. SOLIAN [Suspect]
     Dosage: 800 MG, 1X/DAY
     Route: 048
     Dates: start: 2012
  4. GASTROZEPIN [Concomitant]
     Dosage: 100 MG, 1X/DAY
     Route: 048

REACTIONS (2)
  - Metabolic syndrome [Not Recovered/Not Resolved]
  - Weight increased [Not Recovered/Not Resolved]
